FAERS Safety Report 12586696 (Version 2)
Quarter: 2016Q3

REPORT INFORMATION
  Report Type: Spontaneous
  Country: US (occurrence: US)
  Receive Date: 20160725
  Receipt Date: 20160829
  Transmission Date: 20161109
  Serious: Yes (Death, Hospitalization)
  Sender: FDA-Public Use
  Company Number: US-PFIZER INC-2016342062

PATIENT
  Age: 63 Year
  Sex: Male
  Weight: 67 kg

DRUGS (1)
  1. SUTENT [Suspect]
     Active Substance: SUNITINIB MALATE
     Indication: RENAL CELL CARCINOMA
     Dosage: 50 MG, CYCLIC (DAILY X 28 DAYS THEN OFF 14 DAYS)
     Route: 048
     Dates: start: 20151105, end: 20160511

REACTIONS (2)
  - Pneumonia [Fatal]
  - Wound dehiscence [Unknown]

NARRATIVE: CASE EVENT DATE: 201511
